FAERS Safety Report 5837796-8 (Version None)
Quarter: 2008Q3

REPORT INFORMATION
  Report Type: 
  Country: None (occurrence: None)
  Receive Date: 20080806
  Receipt Date: 20080722
  Transmission Date: 20090109
  Serious: Yes (Other)
  Sender: FDA-Public Use
  Company Number: 2008AL008770

PATIENT
  Age: 75 Year
  Sex: Male
  Weight: 100.2449 kg

DRUGS (5)
  1. DIGOXIN [Suspect]
     Indication: ARRHYTHMIA
     Dosage: 0.125MG, DAILY, PO
     Route: 048
  2. TOPROL-XL [Concomitant]
  3. ACCUPRIL [Concomitant]
  4. CELEBREX [Concomitant]
  5. WARFARIN SODIUM [Concomitant]

REACTIONS (4)
  - DIZZINESS [None]
  - HEART RATE DECREASED [None]
  - HEART RATE IRREGULAR [None]
  - HYPOTENSION [None]
